FAERS Safety Report 21175680 (Version 2)
Quarter: 2022Q3

REPORT INFORMATION
  Report Type: Spontaneous
  Country: US (occurrence: US)
  Receive Date: 20220805
  Receipt Date: 20220817
  Transmission Date: 20221027
  Serious: No
  Sender: FDA-Public Use
  Company Number: US-PFIZER INC-2019412739

PATIENT
  Age: 72 Year
  Sex: Female
  Weight: 84.37 kg

DRUGS (2)
  1. ESTRING [Suspect]
     Active Substance: ESTRADIOL
     Indication: Hormone replacement therapy
     Dosage: 2 MG, EVERY 3 MONTHS (7.5 MCG/4HR)
     Route: 067
  2. ESTRING [Suspect]
     Active Substance: ESTRADIOL
     Indication: Atrophic vulvovaginitis
     Dosage: 2 MG, EVERY 3 MONTHS (INSERT 1 (ONE) RING VAGINALLY EVERY THREE MONTHS)
     Route: 067

REACTIONS (2)
  - Weight decreased [Unknown]
  - Product prescribing error [Unknown]
